FAERS Safety Report 7940342-6 (Version None)
Quarter: 2011Q4

REPORT INFORMATION
  Report Type: 
  Country: None (occurrence: None)
  Receive Date: 20111127
  Receipt Date: 20080206
  Transmission Date: 20120403
  Serious: No
  Sender: FDA-Public Use
  Company Number: PHHY2008BR39597

PATIENT
  Age: 34 Year
  Sex: Male

DRUGS (1)
  1. TEGRETOL [Suspect]

REACTIONS (4)
  - FATIGUE [None]
  - MEMORY IMPAIRMENT [None]
  - CONVULSION [None]
  - DIZZINESS [None]
